FAERS Safety Report 5059635-8 (Version None)
Quarter: 2006Q3

REPORT INFORMATION
  Report Type: 
  Country: None (occurrence: None)
  Receive Date: 20060724
  Receipt Date: 20060324
  Transmission Date: 20061208
  Serious: Yes (Other)
  Sender: FDA-Public Use
  Company Number: US-GLAXOSMITHKLINE-A0598969A

PATIENT
  Age: 72 Year
  Sex: Female
  Weight: 67.3 kg

DRUGS (5)
  1. HYCAMTIN [Suspect]
     Dosage: 1.74MG PER DAY
     Route: 042
     Dates: start: 20060227, end: 20060228
  2. TOPROL-XL [Concomitant]
  3. DIGOXIN [Concomitant]
  4. FOLIC ACID [Concomitant]
  5. HYDROCHLOROTHIAZIDE [Concomitant]

REACTIONS (3)
  - DYSPHONIA [None]
  - HEADACHE [None]
  - MUSCULOSKELETAL PAIN [None]
